FAERS Safety Report 9528509 (Version 1)
Quarter: 2013Q1

REPORT INFORMATION
  Report Type: Spontaneous
  Country: US (occurrence: None)
  Receive Date: 20130320
  Receipt Date: 20130320
  Transmission Date: 20140127
  Serious: Yes (Disabling)
  Sender: FDA-Public Use
  Company Number: 1326826

PATIENT
  Sex: 0

DRUGS (4)
  1. METOCLOPRAMIDE [Suspect]
     Indication: ABDOMINAL DISTENSION
     Dosage: NOT REPORTED, NOT REPORTED, INJECTION (UNKNOWN), OTHER
     Route: 050
  2. METOCLOPRAMIDE [Suspect]
     Indication: DYSPEPSIA
     Dosage: NOT REPORTED, NOT REPORTED, INJECTION (UNKNOWN), OTHER
     Route: 050
  3. METOCLOPRAMIDE [Suspect]
     Indication: ABDOMINAL DISTENSION
     Dosage: NOT REPORTED, NOT REPORTED (UNKNOWN), ORAL
     Route: 048
  4. METOCLOPRAMIDE [Suspect]
     Indication: DYSPEPSIA
     Dosage: NOT REPORTED, NOT REPORTED (UNKNOWN), ORAL
     Route: 048

REACTIONS (2)
  - Medication error [None]
  - Tardive dyskinesia [None]
